FAERS Safety Report 5488643-8 (Version None)
Quarter: 2007Q4

REPORT INFORMATION
  Report Type: 
  Country: None (occurrence: None)
  Receive Date: 20071017
  Receipt Date: 20070302
  Transmission Date: 20080405
  Serious: No
  Sender: FDA-Public Use
  Company Number: A0641616A

PATIENT
  Age: 6 Year
  Sex: Male

DRUGS (1)
  1. CEFTIN [Suspect]
     Indication: DRUG USE FOR UNKNOWN INDICATION
     Route: 048

REACTIONS (2)
  - COUGH [None]
  - MEDICATION ERROR [None]
